FAERS Safety Report 25257146 (Version 1)
Quarter: 2025Q2

REPORT INFORMATION
  Report Type: Spontaneous
  Country: US (occurrence: US)
  Receive Date: 20250430
  Receipt Date: 20250430
  Transmission Date: 20250717
  Serious: Yes (Death, Other)
  Sender: BRISTOL-MYERS SQUIBB COMPANY
  Company Number: US-BRISTOL-MYERS SQUIBB COMPANY-2025-059777

PATIENT
  Age: 72 Year
  Sex: Male

DRUGS (16)
  1. LENALIDOMIDE [Suspect]
     Active Substance: LENALIDOMIDE
     Indication: Follicular lymphoma
     Dosage: DAILY FOR 21 DAYS ON FOLLOWED BY 7 DAYS OFF
     Route: 048
  2. LENALIDOMIDE [Suspect]
     Active Substance: LENALIDOMIDE
     Indication: Diffuse large B-cell lymphoma
  3. METOPROLOL TARTRATE [Concomitant]
     Active Substance: METOPROLOL TARTRATE
  4. ENTRESTO [Concomitant]
     Active Substance: SACUBITRIL\VALSARTAN
  5. ENTECAVIR [Concomitant]
     Active Substance: ENTECAVIR
  6. SPIRONOLACTONE [Concomitant]
     Active Substance: SPIRONOLACTONE
  7. GABAPENTIN [Concomitant]
     Active Substance: GABAPENTIN
  8. MAGNESIUM [Concomitant]
     Active Substance: MAGNESIUM
  9. ACYCLOVIR [Concomitant]
     Active Substance: ACYCLOVIR
  10. JARDIANCE [Concomitant]
     Active Substance: EMPAGLIFLOZIN
  11. CHOLECALCIFEROL [Concomitant]
     Active Substance: CHOLECALCIFEROL
  12. OXYCODONE [Concomitant]
     Active Substance: OXYCODONE
  13. ACETAMINOPHEN [Concomitant]
     Active Substance: ACETAMINOPHEN
  14. FOLIC ACID [Concomitant]
     Active Substance: FOLIC ACID
  15. INDOMETHACIN [Concomitant]
     Active Substance: INDOMETHACIN
  16. URSODIOL [Concomitant]
     Active Substance: URSODIOL

REACTIONS (1)
  - Death [Fatal]
